FAERS Safety Report 22037675 (Version 1)
Quarter: 2023Q1

REPORT INFORMATION
  Report Type: Spontaneous
  Country: CN (occurrence: CN)
  Receive Date: 20230227
  Receipt Date: 20230227
  Transmission Date: 20230417
  Serious: Yes (Hospitalization)
  Sender: FDA-Public Use
  Company Number: CN-002147023-NVSC2023CN041231

PATIENT
  Age: 30 Year
  Sex: Female
  Weight: 44 kg

DRUGS (2)
  1. COSENTYX [Suspect]
     Active Substance: SECUKINUMAB
     Indication: Psoriasis
     Dosage: 300 MG, QMO
     Route: 058
     Dates: start: 20220914
  2. COSENTYX [Suspect]
     Active Substance: SECUKINUMAB
     Dosage: UNK
     Route: 058
     Dates: start: 20230128

REACTIONS (4)
  - Psoriasis [Unknown]
  - Pruritus [Unknown]
  - Gastrointestinal infection [Unknown]
  - Genital herpes [Unknown]

NARRATIVE: CASE EVENT DATE: 20230126
